FAERS Safety Report 14846775 (Version 2)
Quarter: 2019Q1

REPORT INFORMATION
  Report Type: Report from Study
  Country: DE (occurrence: DE)
  Receive Date: 20180504
  Receipt Date: 20190207
  Transmission Date: 20190417
  Serious: Yes (Other)
  Sender: FDA-Public Use
  Company Number: DE-TEVA-2018-DE-888618

PATIENT
  Sex: Female
  Weight: 83 kg

DRUGS (12)
  1. VOTRIENT [Suspect]
     Active Substance: PAZOPANIB HYDROCHLORIDE
     Indication: METASTATIC RENAL CELL CARCINOMA
     Dosage: 3200 MILLIGRAM DAILY;
     Route: 048
     Dates: start: 20170505, end: 20170601
  2. LEVEMIR [Concomitant]
     Active Substance: INSULIN DETEMIR
     Indication: DIABETES MELLITUS
     Dosage: 80 MILLIGRAM DAILY;
     Route: 048
     Dates: start: 19990101
  3. TRULICITY [Concomitant]
     Active Substance: DULAGLUTIDE
     Indication: DIABETES MELLITUS
     Dosage: 6 MILLIGRAM DAILY;
     Route: 048
     Dates: start: 19990101
  4. CLONIDIN RATIOPHARM [Concomitant]
     Active Substance: CLONIDINE HYDROCHLORIDE
     Indication: HYPERTENSION
     Dosage: 300 MICROGRAM DAILY;
     Route: 048
     Dates: start: 19990101
  5. ATORVASTATIN RATIOPHARM [Concomitant]
     Active Substance: ATORVASTATIN
     Indication: PROPHYLAXIS
     Dosage: 80 MILLIGRAM DAILY;
     Route: 048
     Dates: start: 19990101
  6. CLONIDIN RATIOPHARM [Concomitant]
     Active Substance: CLONIDINE HYDROCHLORIDE
     Dosage: 600 MILLIGRAM DAILY;
     Route: 048
     Dates: start: 19990101
  7. DEKRISTOL [Concomitant]
     Active Substance: CHOLECALCIFEROL
     Indication: PROPHYLAXIS
     Dosage: 400 OT, QD
     Route: 058
     Dates: start: 19990101
  8. AMLODIPIN-RATIOPHARM [Suspect]
     Active Substance: AMLODIPINE MALEATE
     Indication: HYPERTENSION
     Dosage: 20 MILLIGRAM DAILY;
     Route: 048
     Dates: start: 19990101
  9. VOTRIENT [Suspect]
     Active Substance: PAZOPANIB HYDROCHLORIDE
     Dosage: 1600 MILLIGRAM DAILY;
     Route: 048
     Dates: start: 20170626, end: 20170912
  10. APIDRA [Concomitant]
     Active Substance: INSULIN GLULISINE
     Indication: DIABETES MELLITUS
     Dosage: 300 ML DAILY;
     Route: 058
     Dates: start: 19990101
  11. MAGNETRANS [Concomitant]
     Indication: PROPHYLAXIS
     Dosage: 1500 MILLIGRAM DAILY;
     Route: 048
     Dates: start: 19990101
  12. BISOPROLOL RATIOPHARM [Concomitant]
     Active Substance: BISOPROLOL
     Indication: HYPERTENSION
     Dosage: 10 MILLIGRAM DAILY;
     Route: 048
     Dates: start: 19990101

REACTIONS (2)
  - Transaminases increased [Recovered/Resolved]
  - Cholestasis [Not Recovered/Not Resolved]

NARRATIVE: CASE EVENT DATE: 20170602
